FAERS Safety Report 4519242-X (Version None)
Quarter: 2004Q4

REPORT INFORMATION
  Report Type: 
  Country: None (occurrence: None)
  Receive Date: 20041201
  Receipt Date: 20041115
  Transmission Date: 20050328
  Serious: Yes (Other)
  Sender: FDA-Public Use
  Company Number: 8006872

PATIENT

DRUGS (4)
  1. KEPPRA [Suspect]
     Dosage: 2000MG/D VIA
     Route: 064
     Dates: start: 20040330, end: 20040618
  2. LAMOTRIGINE [Concomitant]
  3. GABAPENTIN [Concomitant]
  4. CLONAZEPAM [Concomitant]

REACTIONS (3)
  - CAESAREAN SECTION [None]
  - DRUG EXPOSURE DURING PREGNANCY [None]
  - PLACENTAL INSUFFICIENCY [None]
